FAERS Safety Report 5499603-5 (Version None)
Quarter: 2007Q4

REPORT INFORMATION
  Report Type: 
  Country: None (occurrence: None)
  Receive Date: 20071026
  Receipt Date: 20071016
  Transmission Date: 20080405
  Serious: Yes (Death)
  Sender: FDA-Public Use
  Company Number: IE-SANOFI-SYNTHELABO-A01200711882

PATIENT
  Sex: Male

DRUGS (2)
  1. BICALUTAMIDE [Concomitant]
     Route: 048
     Dates: start: 20070707, end: 20070807
  2. ELIGARD [Suspect]
     Indication: PROSTATE CANCER
     Route: 058
     Dates: start: 20070810, end: 20070810

REACTIONS (2)
  - ACCIDENTAL OVERDOSE [None]
  - CHRONIC OBSTRUCTIVE PULMONARY DISEASE [None]
